FAERS Safety Report 19300216 (Version 1)
Quarter: 2021Q2

REPORT INFORMATION
  Report Type: Spontaneous
  Country: US (occurrence: US)
  Receive Date: 20210524
  Receipt Date: 20210524
  Transmission Date: 20210717
  Serious: No
  Sender: FDA-Public Use
  Company Number: US-GALDERMA-US2021009311

PATIENT
  Age: 12 Year
  Sex: Female

DRUGS (19)
  1. TRETINOIN. [Concomitant]
     Active Substance: TRETINOIN
     Indication: MOLLUSCUM CONTAGIOSUM
  2. CLOCORTOLONE [Concomitant]
     Indication: PRODUCT USED FOR UNKNOWN INDICATION
  3. ADAPALENE (ADAPALENE) [Suspect]
     Active Substance: ADAPALENE
     Indication: FOLLICULAR MUCINOSIS
     Dosage: 0.1%
     Route: 065
  4. DAPSONE. [Concomitant]
     Active Substance: DAPSONE
     Indication: DERMATITIS ACNEIFORM
  5. TAZAROTENE. [Concomitant]
     Active Substance: TAZAROTENE
     Indication: FOLLICULAR MUCINOSIS
     Dosage: 0.1%
  6. HYDROXYCHLOROQUINE [Concomitant]
     Active Substance: HYDROXYCHLOROQUINE
     Indication: FOLLICULAR MUCINOSIS
     Route: 065
  7. IMIQUIMOD. [Concomitant]
     Active Substance: IMIQUIMOD
     Indication: PRODUCT USED FOR UNKNOWN INDICATION
     Route: 065
  8. TAZAROTENE. [Concomitant]
     Active Substance: TAZAROTENE
     Indication: DERMATITIS ACNEIFORM
  9. BENZOYL PEROXIDE (BENZOYL PEROXIDE) [Suspect]
     Active Substance: BENZOYL PEROXIDE
     Indication: FOLLICULAR MUCINOSIS
     Dosage: 10%
     Route: 061
  10. ADAPALENE (ADAPALENE) [Suspect]
     Active Substance: ADAPALENE
     Indication: DERMATITIS ACNEIFORM
  11. BENZOYL PEROXIDE (BENZOYL PEROXIDE) [Suspect]
     Active Substance: BENZOYL PEROXIDE
     Indication: DERMATITIS ACNEIFORM
  12. TRIAMCINOLONE [Concomitant]
     Active Substance: TRIAMCINOLONE
     Indication: ACNE
     Route: 065
  13. TRIAMCINOLONE [Concomitant]
     Active Substance: TRIAMCINOLONE
     Indication: MOLLUSCUM CONTAGIOSUM
  14. DAPSONE. [Concomitant]
     Active Substance: DAPSONE
     Indication: FOLLICULAR MUCINOSIS
     Route: 065
  15. TRETINOIN. [Concomitant]
     Active Substance: TRETINOIN
     Indication: ACNE
     Dosage: .02%
     Route: 065
  16. MINOCYCLINE [Concomitant]
     Active Substance: MINOCYCLINE HYDROCHLORIDE
     Indication: ACNE
     Route: 065
  17. HYDROXYCHLOROQUINE [Concomitant]
     Active Substance: HYDROXYCHLOROQUINE
     Indication: DERMATITIS ACNEIFORM
  18. CLINDAMYCIN. [Concomitant]
     Active Substance: CLINDAMYCIN
     Indication: PRODUCT USED FOR UNKNOWN INDICATION
     Route: 065
  19. MINOCYCLINE [Concomitant]
     Active Substance: MINOCYCLINE HYDROCHLORIDE
     Indication: MOLLUSCUM CONTAGIOSUM

REACTIONS (2)
  - Drug ineffective for unapproved indication [Recovered/Resolved]
  - Intentional product use issue [Recovered/Resolved]
